FAERS Safety Report 6625227-X (Version None)
Quarter: 2010Q1

REPORT INFORMATION
  Report Type: 
  Country: None (occurrence: None)
  Receive Date: 20100310
  Receipt Date: 20090908
  Transmission Date: 20100710
  Serious: No
  Sender: FDA-Public Use
  Company Number: US-BIOGENIDEC-2009BI028971

PATIENT
  Sex: Female

DRUGS (1)
  1. AVONEX [Suspect]
     Indication: MULTIPLE SCLEROSIS
     Route: 030
     Dates: start: 20000709

REACTIONS (6)
  - BACK PAIN [None]
  - BLADDER SPASM [None]
  - DEPRESSED LEVEL OF CONSCIOUSNESS [None]
  - INSOMNIA [None]
  - MUSCULAR WEAKNESS [None]
  - STRESS [None]
